FAERS Safety Report 17259975 (Version 2)
Quarter: 2020Q1

REPORT INFORMATION
  Report Type: Report from Study
  Country: US (occurrence: US)
  Receive Date: 20200111
  Receipt Date: 20200122
  Transmission Date: 20200409
  Serious: No
  Sender: FDA-Public Use
  Company Number: US-SHIRE-US201903338

PATIENT
  Sex: Female

DRUGS (1)
  1. XIIDRA [Suspect]
     Active Substance: LIFITEGRAST
     Indication: PRODUCT USED FOR UNKNOWN INDICATION
     Dosage: 1 GTT DROPS, 2X/DAY:BID
     Route: 047

REACTIONS (6)
  - Stress [Unknown]
  - Joint injury [Unknown]
  - Visual impairment [Unknown]
  - Upper limb fracture [Unknown]
  - Arthritis [Unknown]
  - Fall [Unknown]
